FAERS Safety Report 12366924 (Version 1)
Quarter: 2016Q2

REPORT INFORMATION
  Report Type: Spontaneous
  Country: US (occurrence: US)
  Receive Date: 20160513
  Receipt Date: 20160513
  Transmission Date: 20160815
  Serious: No
  Sender: FDA-Public Use
  Company Number: US-MDT-ADR-2015-02388

PATIENT
  Age: 42 Year
  Sex: Male

DRUGS (2)
  1. DILAUDID [Suspect]
     Active Substance: HYDROMORPHONE HYDROCHLORIDE
  2. BACLOFEN. [Suspect]
     Active Substance: BACLOFEN

REACTIONS (3)
  - Performance status decreased [Unknown]
  - Abasia [Unknown]
  - Pain [Unknown]
